FAERS Safety Report 16055805 (Version 2)
Quarter: 2019Q2

REPORT INFORMATION
  Report Type: Spontaneous
  Country: US (occurrence: US)
  Receive Date: 20190311
  Receipt Date: 20190521
  Transmission Date: 20190711
  Serious: Yes (Death, Other)
  Sender: FDA-Public Use
  Company Number: US-ASTRAZENECA-2018SF21104

PATIENT
  Sex: Female

DRUGS (55)
  1. PANTOPRAZOLE [Concomitant]
     Active Substance: PANTOPRAZOLE
  2. METOCLOPRAMIDE. [Concomitant]
     Active Substance: METOCLOPRAMIDE
  3. ASPIRIN. [Concomitant]
     Active Substance: ASPIRIN
  4. ALPRAZOLAM. [Concomitant]
     Active Substance: ALPRAZOLAM
  5. LEVEMIR [Concomitant]
     Active Substance: INSULIN DETEMIR
  6. ACEPHEN [Concomitant]
     Active Substance: ACETAMINOPHEN
  7. CELECOXIB. [Concomitant]
     Active Substance: CELECOXIB
  8. CLONIDINE. [Concomitant]
     Active Substance: CLONIDINE
  9. GLYCOL SALICYLATE [Concomitant]
     Active Substance: GLYCOL SALICYLATE
  10. FUROSEMIDE. [Concomitant]
     Active Substance: FUROSEMIDE
  11. VIGAMOX [Concomitant]
     Active Substance: MOXIFLOXACIN HYDROCHLORIDE
  12. ZITHROMAX [Concomitant]
     Active Substance: AZITHROMYCIN DIHYDRATE
  13. CLONIDINE. [Concomitant]
     Active Substance: CLONIDINE
  14. PREVACID [Suspect]
     Active Substance: LANSOPRAZOLE
     Route: 065
     Dates: start: 20000101, end: 20160104
  15. PREVACID [Suspect]
     Active Substance: LANSOPRAZOLE
     Route: 065
     Dates: start: 2000, end: 2008
  16. MUPIROCIN. [Concomitant]
     Active Substance: MUPIROCIN
  17. GLYBURIDE. [Concomitant]
     Active Substance: GLYBURIDE
  18. MIRALAX [Concomitant]
     Active Substance: POLYETHYLENE GLYCOL 3350
  19. NEVANAC [Concomitant]
     Active Substance: NEPAFENAC
  20. NEXIUM [Suspect]
     Active Substance: ESOMEPRAZOLE MAGNESIUM
     Route: 048
     Dates: start: 2000, end: 2008
  21. HYDROCODONE [Concomitant]
     Active Substance: HYDROCODONE
  22. ISOSORBIDE. [Concomitant]
     Active Substance: ISOSORBIDE
  23. COMBIVENT [Concomitant]
     Active Substance: ALBUTEROL SULFATE\IPRATROPIUM BROMIDE
  24. HYZAAR [Concomitant]
     Active Substance: HYDROCHLOROTHIAZIDE\LOSARTAN POTASSIUM
  25. LASIX [Concomitant]
     Active Substance: FUROSEMIDE
  26. METOPROLOL SUCCINATE. [Concomitant]
     Active Substance: METOPROLOL SUCCINATE
  27. CLOPIDOGREL [Concomitant]
     Active Substance: CLOPIDOGREL BISULFATE
  28. NOVOLOG [Concomitant]
     Active Substance: INSULIN ASPART
  29. CLONIDINE. [Concomitant]
     Active Substance: CLONIDINE
  30. GLIPIZIDE. [Concomitant]
     Active Substance: GLIPIZIDE
  31. HYDROXYZINE PAMOATE. [Concomitant]
     Active Substance: HYDROXYZINE PAMOATE
  32. CIPROFLOXACIN. [Concomitant]
     Active Substance: CIPROFLOXACIN
  33. LOSARTAN. [Concomitant]
     Active Substance: LOSARTAN
  34. CALCIUM ACETATE. [Concomitant]
     Active Substance: CALCIUM ACETATE
  35. FERROUS SULFATE. [Concomitant]
     Active Substance: FERROUS SULFATE
  36. QUINAPRIL. [Concomitant]
     Active Substance: QUINAPRIL
  37. ZOCOR [Concomitant]
     Active Substance: SIMVASTATIN
  38. FERROUS SULFATE. [Concomitant]
     Active Substance: FERROUS SULFATE
  39. LOSARTAN. [Concomitant]
     Active Substance: LOSARTAN
  40. CLONIDINE. [Concomitant]
     Active Substance: CLONIDINE
  41. NITROGLYCERIN. [Concomitant]
     Active Substance: NITROGLYCERIN
  42. ZOLPIDEM [Concomitant]
     Active Substance: ZOLPIDEM\ZOLPIDEM TARTRATE
  43. ZETIA [Concomitant]
     Active Substance: EZETIMIBE
  44. NEXIUM [Suspect]
     Active Substance: ESOMEPRAZOLE MAGNESIUM
     Route: 048
     Dates: start: 20010220, end: 20160104
  45. NEXIUM [Suspect]
     Active Substance: ESOMEPRAZOLE MAGNESIUM
     Route: 048
     Dates: start: 20140929
  46. LYRICA [Concomitant]
     Active Substance: PREGABALIN
  47. VICTOZA [Concomitant]
     Active Substance: LIRAGLUTIDE
  48. FOLIC ACID. [Concomitant]
     Active Substance: FOLIC ACID
  49. LOSARTAN. [Concomitant]
     Active Substance: LOSARTAN
  50. CLOPIDOGREL [Concomitant]
     Active Substance: CLOPIDOGREL BISULFATE
  51. VYTORIN [Concomitant]
     Active Substance: EZETIMIBE\SIMVASTATIN
  52. NEXIUM [Suspect]
     Active Substance: ESOMEPRAZOLE MAGNESIUM
     Route: 048
     Dates: start: 20090309
  53. CELEBREX [Concomitant]
     Active Substance: CELECOXIB
  54. METOCLOPRAMIDE. [Concomitant]
     Active Substance: METOCLOPRAMIDE
  55. ISOSORBIDE DINITRATE. [Concomitant]
     Active Substance: ISOSORBIDE DINITRATE

REACTIONS (5)
  - Death [Fatal]
  - End stage renal disease [Unknown]
  - Acute kidney injury [Unknown]
  - Chronic kidney disease [Unknown]
  - Renal injury [Unknown]
